FAERS Safety Report 22203448 (Version 2)
Quarter: 2023Q2

REPORT INFORMATION
  Report Type: Spontaneous
  Country: US (occurrence: US)
  Receive Date: 20230412
  Receipt Date: 20230525
  Transmission Date: 20230722
  Serious: No
  Sender: FDA-Public Use
  Company Number: US-Santen Inc-2023-USA-002764

PATIENT
  Sex: Female

DRUGS (1)
  1. TOBRADEX ST [Suspect]
     Active Substance: DEXAMETHASONE\TOBRAMYCIN
     Indication: Product used for unknown indication
     Dosage: SIX DROPS DAILY IN HER LEFT EYE
     Route: 047

REACTIONS (3)
  - Product use complaint [Unknown]
  - Intentional product misuse [Unknown]
  - Product dose omission issue [Unknown]
